FAERS Safety Report 16792386 (Version 1)
Quarter: 2019Q3

REPORT INFORMATION
  Report Type: Spontaneous
  Country: FR (occurrence: FR)
  Receive Date: 20190910
  Receipt Date: 20190910
  Transmission Date: 20191005
  Serious: Yes (Hospitalization, Other)
  Sender: FDA-Public Use
  Company Number: FR-GLAXOSMITHKLINE-FR2019162312

PATIENT
  Age: 13 Year
  Sex: Female
  Weight: 30 kg

DRUGS (17)
  1. INEXIUM [Suspect]
     Active Substance: ESOMEPRAZOLE
     Indication: PRODUCT USED FOR UNKNOWN INDICATION
     Dosage: 20 MG, QD
     Route: 048
  2. TOCO [Concomitant]
     Active Substance: .ALPHA.-TOCOPHEROL ACETATE, D-
     Indication: CYSTIC FIBROSIS
     Dosage: 1000 MG, WE
     Route: 048
  3. RULID [Concomitant]
     Active Substance: ROXITHROMYCIN
     Indication: BACTERIAL INFECTION
     Dosage: 150 MG, QD
     Route: 048
     Dates: start: 20190805, end: 20190807
  4. ZYMAD [Concomitant]
     Active Substance: CHOLECALCIFEROL
     Indication: CYSTIC FIBROSIS
     Dosage: UNK
     Route: 048
  5. NEBCINE [Concomitant]
     Active Substance: TOBRAMYCIN
     Indication: BACTERIAL INFECTION
     Dosage: 405 MG, QD
     Route: 042
     Dates: start: 20190805, end: 20190811
  6. URSOLVAN [Concomitant]
     Active Substance: URSODIOL
     Indication: CYSTIC FIBROSIS
     Dosage: 800 MG, QD
     Route: 048
  7. CREON [Concomitant]
     Active Substance: PANCRELIPASE AMYLASE\PANCRELIPASE LIPASE\PANCRELIPASE PROTEASE
     Indication: CYSTIC FIBROSIS
     Dosage: UNK
     Route: 048
  8. AIROMIR [Suspect]
     Active Substance: ALBUTEROL SULFATE
     Indication: CYSTIC FIBROSIS
     Dosage: UNK
     Route: 055
  9. FUMAFER [Concomitant]
     Active Substance: FERROUS FUMARATE
     Indication: CYSTIC FIBROSIS
     Dosage: 66 MG, QD
     Route: 048
  10. TAZOCILLINE [Concomitant]
     Active Substance: PIPERACILLIN SODIUM\TAZOBACTAM SODIUM
     Indication: BACTERIAL INFECTION
     Dosage: 11250 MG, QD
     Route: 042
     Dates: start: 20190805, end: 20190811
  11. SERETIDE [Suspect]
     Active Substance: FLUTICASONE PROPIONATE\SALMETEROL XINAFOATE
     Indication: CYSTIC FIBROSIS
     Dosage: 2 DF, QD
     Route: 055
  12. VITAMIN K [Concomitant]
     Active Substance: PHYTONADIONE
     Indication: CYSTIC FIBROSIS
     Dosage: 30 MG, WE
     Route: 048
  13. CIFLOX [Concomitant]
     Active Substance: CIPROFLOXACIN
     Indication: BACTERIAL INFECTION
     Dosage: UNK
     Route: 048
     Dates: start: 20190709, end: 20190730
  14. VENTOLINE [Suspect]
     Active Substance: ALBUTEROL
     Indication: DYSPNOEA
     Dosage: 4 DF, QD
     Route: 055
     Dates: start: 20190805, end: 20190805
  15. PULMOZYME [Concomitant]
     Active Substance: DORNASE ALFA
     Indication: CYSTIC FIBROSIS
     Dosage: 2500 IU, QD
     Route: 055
  16. VITAMIN A [Concomitant]
     Active Substance: VITAMIN A
     Indication: CYSTIC FIBROSIS
     Dosage: 15000 IU, WE
     Route: 048
  17. UVEDOSE [Concomitant]
     Active Substance: CHOLECALCIFEROL
     Indication: CYSTIC FIBROSIS
     Dosage: 1 DF, UNK
     Route: 048

REACTIONS (1)
  - Hypokalaemia [Recovered/Resolved]

NARRATIVE: CASE EVENT DATE: 20190806
